FAERS Safety Report 23551028 (Version 2)
Quarter: 2024Q1

REPORT INFORMATION
  Report Type: Report from Study
  Country: NL (occurrence: NL)
  Receive Date: 20240222
  Receipt Date: 20240318
  Transmission Date: 20240409
  Serious: Yes (Hospitalization, Other)
  Sender: FDA-Public Use
  Company Number: NL-ABBVIE-5648410

PATIENT
  Age: 70 Year
  Sex: Male

DRUGS (11)
  1. CARBIDOPA\LEVODOPA [Suspect]
     Active Substance: CARBIDOPA\LEVODOPA
     Indication: Parkinson^s disease
     Dosage: MD: 9.0ML, CD: 4.1ML/H, ED: 3.50ML, CND: 2.0ML/H, END: 3.50ML?REMAINS AT 24 HOURS
     Route: 050
     Dates: start: 20240311
  2. CARBIDOPA\LEVODOPA [Suspect]
     Active Substance: CARBIDOPA\LEVODOPA
     Dosage: MD: 9.0 ML, CD: 4.1 ML/H, ED: 3.5 ML, CND: 2.0 ML/H, END: 3.5 ML?DURATION TEXT: GOES TO 24  HOURS
     Route: 050
     Dates: start: 20231120, end: 20240310
  3. CARBIDOPA\LEVODOPA [Suspect]
     Active Substance: CARBIDOPA\LEVODOPA
     Dosage: MD: 11.0 ML, CD: 4.1 ML/H, ED: 3.5 ML? DURATION TEXT: REMAINS AT 16 HOURS
     Route: 050
     Dates: start: 20230712, end: 20231010
  4. CARBIDOPA\LEVODOPA [Suspect]
     Active Substance: CARBIDOPA\LEVODOPA
     Dosage: MD: 11.0 ML, CD: 4.1 ML/H, ED: 3.5 ML? DURATION TEXT: REMAINS AT 16 HOURS
     Route: 050
     Dates: start: 20231011, end: 20231119
  5. CARBIDOPA\LEVODOPA [Suspect]
     Active Substance: CARBIDOPA\LEVODOPA
     Dosage: MD: 11.0 ML, CD: 4.1 ML/H, ED: 3.5 ML? DURATION TEXT: REMAINS AT 16 HOURS
     Route: 050
     Dates: start: 20230707, end: 20230711
  6. CARBIDOPA\LEVODOPA [Suspect]
     Active Substance: CARBIDOPA\LEVODOPA
     Route: 050
     Dates: start: 20201102
  7. ROPINIROLE [Concomitant]
     Active Substance: ROPINIROLE
     Indication: Parkinson^s disease
     Dosage: 2 TABLET?FORM STRENGTH: 2 MILLIGRAM
     Route: 048
     Dates: start: 20200901
  8. POLYETHYLENE GLYCOLS [Concomitant]
     Active Substance: POLYETHYLENE GLYCOLS
     Indication: Abnormal faeces
  9. ENTACAPONE [Concomitant]
     Active Substance: ENTACAPONE
     Indication: Parkinson^s disease
     Dosage: FORM STRENGTH: 200 MILLIGRAM
     Dates: start: 20200901, end: 20210311
  10. CARBIDOPA AND LEVODOPA [Concomitant]
     Active Substance: CARBIDOPA\LEVODOPA
     Indication: Parkinson^s disease
     Dates: start: 20191201
  11. CARBIDOPA AND LEVODOPA [Concomitant]
     Active Substance: CARBIDOPA\LEVODOPA
     Indication: Parkinson^s disease
     Dosage: TIME INTERVAL: 0.16666667 DAYS: FORM STRENGTH: 125 MILLIGRAM ?FREQUENCY TEXT: 3 TABLETS BEFORE SL...
     Route: 048
     Dates: start: 20200701

REACTIONS (11)
  - Fracture [Recovering/Resolving]
  - Confusional state [Not Recovered/Not Resolved]
  - Restlessness [Not Recovered/Not Resolved]
  - Screaming [Not Recovered/Not Resolved]
  - Stoma site erythema [Not Recovered/Not Resolved]
  - Rehabilitation therapy [Not Recovered/Not Resolved]
  - Faeces hard [Not Recovered/Not Resolved]
  - Anosognosia [Not Recovered/Not Resolved]
  - Stoma site discharge [Not Recovered/Not Resolved]
  - Hallucination, visual [Not Recovered/Not Resolved]
  - Gastrostomy tube removal [Not Recovered/Not Resolved]

NARRATIVE: CASE EVENT DATE: 20240101
